FAERS Safety Report 23696413 (Version 1)
Quarter: 2024Q2

REPORT INFORMATION
  Report Type: Spontaneous
  Country: DE (occurrence: DE)
  Receive Date: 20240402
  Receipt Date: 20240402
  Transmission Date: 20240716
  Serious: Yes (Congenital Anomaly, Other)
  Sender: FDA-Public Use
  Company Number: None

PATIENT

DRUGS (2)
  1. LACOSAMIDE [Suspect]
     Active Substance: LACOSAMIDE
     Indication: Drug therapy
     Dosage: UNK
     Route: 064
  2. VALPROATE [Suspect]
     Active Substance: VALPROIC ACID
     Indication: Drug therapy
     Dosage: UNK
     Route: 064

REACTIONS (3)
  - Multiple congenital abnormalities [Unknown]
  - Aberrant aortic arch [Unknown]
  - Foetal exposure during pregnancy [Unknown]
